FAERS Safety Report 15439846 (Version 1)
Quarter: 2018Q4

REPORT INFORMATION
  Report Type: Spontaneous
  Country: NL (occurrence: NL)
  Receive Date: 20180928
  Receipt Date: 20180928
  Transmission Date: 20190204
  Serious: Yes (Other)
  Sender: FDA-Public Use
  Company Number: NL-TEVA-2018-NL-959546

PATIENT
  Sex: Male
  Weight: 115 kg

DRUGS (1)
  1. OXCYCODON [Suspect]
     Active Substance: OXYCODONE
     Indication: SURGERY
     Dosage: 2XPER DAG
     Route: 065
     Dates: start: 20180803, end: 20180808

REACTIONS (1)
  - Apnoea [Recovered/Resolved]
